FAERS Safety Report 15850075 (Version 2)
Quarter: 2019Q3

REPORT INFORMATION
  Report Type: Report from Study
  Country: US (occurrence: US)
  Receive Date: 20190121
  Receipt Date: 20190702
  Transmission Date: 20191004
  Serious: No
  Sender: FDA-Public Use
  Company Number: US-SA-2019SA013885

PATIENT
  Age: 64 Year
  Sex: Male

DRUGS (1)
  1. ALIROCUMAB [Suspect]
     Active Substance: ALIROCUMAB
     Dosage: 75 MG, QOW
     Route: 058

REACTIONS (3)
  - Product storage error [Unknown]
  - Back disorder [Not Recovered/Not Resolved]
  - Malaise [Unknown]
